FAERS Safety Report 10221527 (Version 1)
Quarter: 2014Q2

REPORT INFORMATION
  Report Type: Spontaneous
  Country: GB (occurrence: GB)
  Receive Date: 20140606
  Receipt Date: 20140606
  Transmission Date: 20141212
  Serious: Yes (Other)
  Sender: FDA-Public Use
  Company Number: GB-TEVA-484954ISR

PATIENT
  Age: 54 Year
  Sex: Male

DRUGS (4)
  1. LOPERAMIDE [Suspect]
     Indication: GASTROINTESTINAL DISORDER
     Dosage: DOSAGE FORM: TABLETS, 12 TABLETS
     Route: 048
     Dates: start: 20131011
  2. MORPHINE [Suspect]
     Indication: PAIN
     Dosage: 240 MILLIGRAM DAILY;
     Route: 065
     Dates: start: 20131011
  3. MORPHINE [Suspect]
     Route: 065
  4. IMODIUM [Suspect]
     Indication: GASTROINTESTINAL DISORDER
     Dosage: 24 MILLIGRAM DAILY;
     Route: 048
     Dates: start: 20131011

REACTIONS (2)
  - Depression [Unknown]
  - Overdose [Unknown]
